FAERS Safety Report 24776176 (Version 1)
Quarter: 2024Q4

REPORT INFORMATION
  Report Type: Spontaneous
  Country: US (occurrence: US)
  Receive Date: 20241226
  Receipt Date: 20241226
  Transmission Date: 20250115
  Serious: Yes (Other)
  Sender: SANOFI AVENTIS
  Company Number: US-SA-2024SA381111

PATIENT
  Sex: Female
  Weight: 86.82 kg

DRUGS (5)
  1. DUPIXENT [Suspect]
     Active Substance: DUPILUMAB
     Indication: Dermatitis atopic
     Dosage: 300 MG, QOW
     Route: 058
  2. WEGOVY [Concomitant]
     Active Substance: SEMAGLUTIDE
  3. TRIVORA [Concomitant]
     Active Substance: ETHINYL ESTRADIOL\LEVONORGESTREL
  4. LEVOTHYROXINE SODIUM [Concomitant]
     Active Substance: LEVOTHYROXINE SODIUM
  5. LINZESS [Concomitant]
     Active Substance: LINACLOTIDE

REACTIONS (4)
  - Burns third degree [Unknown]
  - Stress [Unknown]
  - Eye contusion [Unknown]
  - Condition aggravated [Unknown]
